FAERS Safety Report 10419262 (Version 1)
Quarter: 2014Q2

REPORT INFORMATION
  Report Type: Report from Study
  Country: US (occurrence: None)
  Receive Date: 20140627
  Receipt Date: 20140627
  Transmission Date: 20141212
  Serious: No
  Sender: FDA-Public Use
  Company Number: CABO-14004090

PATIENT
  Age: 78 Year
  Sex: Male

DRUGS (10)
  1. COMETRIQ (CABOZANTINIB) CAPSULE [Suspect]
     Indication: LUNG NEOPLASM MALIGNANT
     Route: 048
     Dates: start: 20140221, end: 20140407
  2. METOPROLOL (METOPROLOL) [Concomitant]
  3. FOLIC ACID (FOLIC ACID) [Concomitant]
  4. PLAVIX (CLOPIDOGREL, BISULFATE) [Concomitant]
  5. CILOSTAZOL (CILOSTAZOL) [Concomitant]
  6. CLOPIDOGREL (CLOPIDOGREL) [Concomitant]
  7. ATORVASTATIN (ATORVASTATIN) [Concomitant]
  8. FOLIZINE [Concomitant]
  9. HYDROXYCHLOROQUINEI (HYDROXYCHLOROQUINE) [Concomitant]
  10. CARDIOTAB (METOPROLOL TARTRATE) [Concomitant]

REACTIONS (3)
  - Oedema peripheral [None]
  - Decreased appetite [None]
  - Off label use [None]
